FAERS Safety Report 5628692-X (Version None)
Quarter: 2008Q1

REPORT INFORMATION
  Report Type: 
  Country: None (occurrence: None)
  Receive Date: 20080215
  Receipt Date: 20080206
  Transmission Date: 20080703
  Serious: Yes (Other)
  Sender: FDA-Public Use
  Company Number: US-PFIZER INC-2008011854

PATIENT
  Sex: Female
  Weight: 64.9 kg

DRUGS (6)
  1. ZOLOFT [Suspect]
     Indication: DEPRESSION
     Route: 048
  2. CHEMOTHERAPY NOS [Suspect]
     Indication: OVARIAN CANCER
     Route: 042
  3. CYMBALTA [Suspect]
  4. LOPRESSOR [Concomitant]
  5. VITAMIN CAP [Concomitant]
  6. CALCIUM [Concomitant]

REACTIONS (6)
  - ANAEMIA [None]
  - BALANCE DISORDER [None]
  - FATIGUE [None]
  - MUSCLE SPASMS [None]
  - MUSCULAR WEAKNESS [None]
  - OVARIAN CANCER [None]
